FAERS Safety Report 5231152-1 (Version None)
Quarter: 2007Q1

REPORT INFORMATION
  Report Type: 
  Country: None (occurrence: None)
  Receive Date: 20070206
  Receipt Date: 20070126
  Transmission Date: 20070707
  Serious: Yes (Other)
  Sender: FDA-Public Use
  Company Number: PT-ROCHE-480534

PATIENT
  Age: 55 Year
  Sex: Male

DRUGS (2)
  1. XENICAL [Suspect]
     Indication: DRUG USE FOR UNKNOWN INDICATION
     Route: 065
  2. HOMEOPATHIC THERAPY NOS [Concomitant]
     Dosage: DRUG REPORTED AS ^HOMEOPATHY (NON SPECIFIED)^.

REACTIONS (2)
  - HEPATOTOXICITY [None]
  - TRANSAMINASES INCREASED [None]
